FAERS Safety Report 7431203-X (Version None)
Quarter: 2011Q2

REPORT INFORMATION
  Report Type: 
  Country: None (occurrence: None)
  Receive Date: 20110421
  Receipt Date: 20110418
  Transmission Date: 20111010
  Serious: Yes (Life-Threatening, Hospitalization, Disabling)
  Sender: FDA-Public Use
  Company Number: US-MERCK-1104USA02436

PATIENT
  Age: 52 Year
  Sex: Male

DRUGS (4)
  1. TRIZIVIR [Concomitant]
     Indication: HIV INFECTION
     Route: 065
     Dates: start: 20110201
  2. ISENTRESS [Suspect]
     Indication: HIV INFECTION
     Route: 048
     Dates: start: 20110201
  3. MAGNESIUM (UNSPECIFIED) [Concomitant]
     Route: 065
  4. POTASSIUM (UNSPECIFIED) [Concomitant]
     Route: 065

REACTIONS (2)
  - HYPOAESTHESIA [None]
  - NEUROPATHY PERIPHERAL [None]
